FAERS Safety Report 7378265-6 (Version None)
Quarter: 2011Q1

REPORT INFORMATION
  Report Type: 
  Country: None (occurrence: None)
  Receive Date: 20110328
  Receipt Date: 20110323
  Transmission Date: 20110831
  Serious: Yes (Other)
  Sender: FDA-Public Use
  Company Number: D0070798A

PATIENT
  Sex: Female

DRUGS (2)
  1. AZILECT [Concomitant]
     Route: 065
  2. REQUIP [Suspect]
     Indication: PARKINSON'S DISEASE
     Route: 048

REACTIONS (3)
  - HALLUCINATION [None]
  - RESTLESSNESS [None]
  - AGGRESSION [None]
